FAERS Safety Report 10019521 (Version 2)
Quarter: 2014Q3

REPORT INFORMATION
  Report Type: Spontaneous
  Country: FR (occurrence: FR)
  Receive Date: 20140318
  Receipt Date: 20140703
  Transmission Date: 20150326
  Serious: Yes (Death)
  Sender: FDA-Public Use
  Company Number: PHHY2014FR031837

PATIENT
  Age: 78 Year
  Sex: Female

DRUGS (4)
  1. AFINITOR [Suspect]
     Active Substance: EVEROLIMUS
     Indication: RENAL CANCER METASTATIC
     Dosage: 10 MG, DAILY
     Route: 048
     Dates: start: 201311, end: 201402
  2. PREDNISONE. [Concomitant]
     Active Substance: PREDNISONE
     Dates: start: 201402
  3. LEVOTHYROX [Concomitant]
     Active Substance: LEVOTHYROXINE
  4. OMEPRAZOL//OMEPRAZOLE [Concomitant]

REACTIONS (3)
  - Dyspnoea [Fatal]
  - Pneumonitis [Fatal]
  - Respiratory failure [Fatal]

NARRATIVE: CASE EVENT DATE: 20140216
